FAERS Safety Report 4689813-9 (Version None)
Quarter: 2005Q2

REPORT INFORMATION
  Report Type: 
  Country: None (occurrence: None)
  Receive Date: 20050613
  Receipt Date: 20050613
  Transmission Date: 20051028
  Serious: No
  Sender: FDA-Public Use
  Company Number: None

PATIENT
  Sex: Male
  Weight: 83.9154 kg

DRUGS (1)
  1. AMBIEN [Suspect]
     Indication: INSOMNIA

REACTIONS (7)
  - ABNORMAL BEHAVIOUR [None]
  - CONFUSIONAL STATE [None]
  - DELIRIUM [None]
  - DISORIENTATION [None]
  - IMPAIRED DRIVING ABILITY [None]
  - MEMORY IMPAIRMENT [None]
  - PSYCHOTIC DISORDER [None]
